FAERS Safety Report 10158450 (Version 3)
Quarter: 2014Q2

REPORT INFORMATION
  Report Type: Report from Study
  Country: US (occurrence: US)
  Receive Date: 20140507
  Receipt Date: 20140626
  Transmission Date: 20141212
  Serious: Yes (Hospitalization)
  Sender: FDA-Public Use
  Company Number: PHEH2014US009085

PATIENT
  Age: 48 Year
  Sex: Male

DRUGS (4)
  1. GILENYA [Suspect]
     Indication: RELAPSING-REMITTING MULTIPLE SCLEROSIS
     Dosage: 0.5 MG, QD
     Route: 048
     Dates: start: 20130211
  2. DIVALPROEX SODIUM [Concomitant]
     Dosage: 500 MG, Q8H
  3. NAPROXEN [Concomitant]
     Dosage: 500 MG, Q12H
  4. VITAMIN D3 [Concomitant]
     Dosage: 1000 IU, QD
     Route: 048

REACTIONS (11)
  - Convulsion [Unknown]
  - Blood potassium decreased [Unknown]
  - Cognitive disorder [Unknown]
  - Urinary tract disorder [Unknown]
  - Tremor [Unknown]
  - Urine analysis abnormal [Unknown]
  - Bilirubin conjugated increased [Unknown]
  - Blood glucose increased [Unknown]
  - Aspartate aminotransferase increased [Unknown]
  - Alanine aminotransferase increased [Unknown]
  - Back pain [Unknown]
